FAERS Safety Report 8832082 (Version 3)
Quarter: 2012Q4

REPORT INFORMATION
  Report Type: Report from Study
  Country: BR (occurrence: BR)
  Receive Date: 20121009
  Receipt Date: 20121206
  Transmission Date: 20130627
  Serious: Yes (Hospitalization, Other)
  Sender: FDA-Public Use
  Company Number: BR-ROCHE-1140107

PATIENT
  Sex: Female
  Weight: 65 kg

DRUGS (9)
  1. TOCILIZUMAB [Suspect]
     Indication: RHEUMATOID ARTHRITIS
     Route: 065
     Dates: start: 20120401
  2. TOCILIZUMAB [Suspect]
     Route: 065
     Dates: start: 20120514
  3. TOCILIZUMAB [Suspect]
     Route: 065
     Dates: start: 20120614
  4. TOCILIZUMAB [Suspect]
     Route: 065
     Dates: start: 20120701
  5. METHOTREXATE [Concomitant]
  6. PREDNISONE [Concomitant]
  7. PURAN T4 [Concomitant]
  8. OMEPRAZOLE [Concomitant]
  9. FOLIC ACID [Concomitant]

REACTIONS (5)
  - Lung disorder [Unknown]
  - Neoplasm [Unknown]
  - Lung disorder [Unknown]
  - Pneumonia [Unknown]
  - Pain [Not Recovered/Not Resolved]
